FAERS Safety Report 24408993 (Version 1)
Quarter: 2024Q4

REPORT INFORMATION
  Report Type: Spontaneous
  Country: US (occurrence: None)
  Receive Date: 20241007
  Receipt Date: 20241007
  Transmission Date: 20250115
  Serious: Yes (Hospitalization)
  Sender: SUPERNUS
  Company Number: US-ARIS GLOBAL-SUP202409-003610

PATIENT
  Age: 58 Year
  Sex: Female

DRUGS (3)
  1. TOPIRAMATE [Suspect]
     Active Substance: TOPIRAMATE
     Indication: Weight decreased
     Dosage: NOT PROVIDED
  2. PHENTERMINE [Suspect]
     Active Substance: PHENTERMINE\PHENTERMINE HYDROCHLORIDE
     Indication: Weight decreased
     Dosage: NOT PROVIDED
  3. LISINOPRIL AND HYDROCHLOROTHIAZIDE [Concomitant]
     Active Substance: HYDROCHLOROTHIAZIDE\LISINOPRIL
     Indication: Hypertension
     Dosage: EACH DF OF 10 MG-12.5 MG
     Route: 048

REACTIONS (4)
  - Hypokalaemia [Unknown]
  - Muscle spasms [Recovered/Resolved]
  - Muscular weakness [Recovered/Resolved]
  - Product use in unapproved indication [Unknown]
